FAERS Safety Report 4535125-3 (Version None)
Quarter: 2004Q4

REPORT INFORMATION
  Report Type: 
  Country: None (occurrence: None)
  Receive Date: 20041214
  Receipt Date: 20040825
  Transmission Date: 20050328
  Serious: No
  Sender: FDA-Public Use
  Company Number: 2004223873US

PATIENT
  Sex: Female
  Weight: 68 kg

DRUGS (8)
  1. BEXTRA [Suspect]
     Indication: OSTEOARTHRITIS
     Dosage: QD
  2. PREVACID [Concomitant]
  3. COZAAR [Concomitant]
  4. LASIX [Concomitant]
  5. ALDACTONE [Concomitant]
  6. K-DUR [Concomitant]
  7. LEVOXYL [Concomitant]
  8. ZOCOR [Concomitant]

REACTIONS (2)
  - CONTUSION [None]
  - DRUG INTERACTION [None]
